FAERS Safety Report 14347349 (Version 1)
Quarter: 2018Q1

REPORT INFORMATION
  Report Type: Spontaneous
  Country: US (occurrence: US)
  Receive Date: 20180103
  Receipt Date: 20180103
  Transmission Date: 20180509
  Serious: Yes (Life-Threatening, Hospitalization, Disabling)
  Sender: FDA-Public Use
  Company Number: None

PATIENT
  Age: 49 Year
  Sex: Female
  Weight: 73.48 kg

DRUGS (10)
  1. AMITIZA [Concomitant]
     Active Substance: LUBIPROSTONE
  2. LACTULOSE. [Concomitant]
     Active Substance: LACTULOSE
  3. AMBIEN [Suspect]
     Active Substance: ZOLPIDEM TARTRATE
  4. NORTRIPTYLINE [Suspect]
     Active Substance: NORTRIPTYLINE
     Indication: PAIN
     Dosage: 25 MG PAMELOR TAKE 1 CAPSULE AT BED TIME
     Dates: start: 20171004, end: 20171004
  5. GABAPENTIN. [Suspect]
     Active Substance: GABAPENTIN
  6. LORAZEPAM. [Suspect]
     Active Substance: LORAZEPAM
  7. MAGNESIUM CITRATE. [Concomitant]
     Active Substance: MAGNESIUM CITRATE
  8. LINZESS [Concomitant]
     Active Substance: LINACLOTIDE
  9. VITAMIN D3 [Concomitant]
     Active Substance: CHOLECALCIFEROL
  10. MIRALAX/PROPLENE GLYCOL [Concomitant]

REACTIONS (5)
  - Unevaluable event [None]
  - Neck pain [None]
  - Back pain [None]
  - Device issue [None]
  - Toxicity to various agents [None]

NARRATIVE: CASE EVENT DATE: 20170201
